FAERS Safety Report 5952514-0 (Version None)
Quarter: 2008Q4

REPORT INFORMATION
  Report Type: 
  Country: None (occurrence: None)
  Receive Date: 20081113
  Receipt Date: 20081104
  Transmission Date: 20090506
  Serious: Yes (Hospitalization)
  Sender: FDA-Public Use
  Company Number: DE-PFIZER INC-2008094466

PATIENT
  Sex: Female
  Weight: 92 kg

DRUGS (4)
  1. ZYVOXID [Suspect]
     Indication: PNEUMONIA STAPHYLOCOCCAL
     Route: 042
     Dates: start: 20070808, end: 20070816
  2. AVELOX [Suspect]
     Route: 042
     Dates: start: 20070726, end: 20070726
  3. AVELOX [Suspect]
     Route: 048
     Dates: start: 20070727, end: 20070805
  4. CEFUROXIME [Suspect]
     Indication: URINARY TRACT INFECTION
     Route: 042
     Dates: start: 20070806, end: 20070815

REACTIONS (1)
  - HEPATITIS ACUTE [None]
